FAERS Safety Report 5079192-X (Version None)
Quarter: 2006Q3

REPORT INFORMATION
  Report Type: 
  Country: None (occurrence: None)
  Receive Date: 20060808
  Receipt Date: 20060724
  Transmission Date: 20061208
  Serious: Yes (Hospitalization)
  Sender: FDA-Public Use
  Company Number: 06-000738

PATIENT
  Sex: Female

DRUGS (1)
  1. DORYX [Suspect]

REACTIONS (4)
  - DISCOMFORT [None]
  - GASTRIC ULCER [None]
  - OESOPHAGEAL ULCER [None]
  - PAIN [None]
